FAERS Safety Report 10038593 (Version 1)
Quarter: 2014Q1

REPORT INFORMATION
  Report Type: Spontaneous
  Country: US (occurrence: None)
  Receive Date: 20140306
  Receipt Date: 20140306
  Transmission Date: 20141002
  Serious: Yes (Hospitalization, Other)
  Sender: FDA-Public Use
  Company Number: 163-21880-13064525

PATIENT
  Age: 57 Year
  Sex: Female

DRUGS (1)
  1. REVLIMID [Suspect]
     Indication: PLASMA CELL MYELOMA
     Dosage: 25MG, 14 IN 14 D, PO
     Route: 048
     Dates: start: 20130506

REACTIONS (3)
  - White blood cell count decreased [None]
  - Platelet count decreased [None]
  - Red blood cell count decreased [None]
